FAERS Safety Report 23670435 (Version 1)
Quarter: 2024Q1

REPORT INFORMATION
  Report Type: Spontaneous
  Country: ES (occurrence: ES)
  Receive Date: 20240326
  Receipt Date: 20240326
  Transmission Date: 20240410
  Serious: Yes (Hospitalization)
  Sender: FDA-Public Use
  Company Number: None

PATIENT
  Age: 68 Year
  Sex: Male
  Weight: 90 kg

DRUGS (10)
  1. SYNJARDY [Suspect]
     Active Substance: EMPAGLIFLOZIN\METFORMIN HYDROCHLORIDE
     Indication: Type 2 diabetes mellitus
     Dosage: 1 TABLET
     Route: 048
     Dates: start: 20200515
  2. SALBUTAMOL ALDO-UNION 100 microgramos/dosis SUSPENSION PARA INHALACION [Concomitant]
     Indication: Tobacco abuse
     Dosage: 200.0 MCG EVERY 6 HOURS
     Dates: start: 20170516
  3. LORAZEPAM CINFA 1 mg COMPRIMIDOS EFG, 50 comprimidos [Concomitant]
     Indication: Persistent depressive disorder
     Route: 048
     Dates: start: 20111003
  4. ALOPURINOL NORMON 100 mg COMPRIMIDOS EFG , 100 comprimidos [Concomitant]
     Indication: Myocardial ischaemia
     Route: 048
     Dates: start: 20171123
  5. OMEPRAZOL ALMUS 20 mg CAPSULAS DURAS GASTRORRESISTENTES EFG , 56 c?psu [Concomitant]
     Indication: Duodenitis
     Route: 048
     Dates: start: 20160601
  6. ASPIRIN [Concomitant]
     Active Substance: ASPIRIN
     Indication: Myocardial ischaemia
     Route: 048
     Dates: start: 20171123
  7. SPIOLTO RESPIMAT 2,5 MICROGRAMOS/2,5 MICROGRAMOS SOLUCION PARA INHALAC [Concomitant]
     Indication: Bronchitis chronic
     Dosage: 2.0 PUFF EVERY 24 HOURS
     Dates: start: 20161101
  8. NOVONORM 1 mg, COMPRIMIDOS, 90 comprimidos [Concomitant]
     Indication: Type 2 diabetes mellitus
     Route: 048
     Dates: start: 20230308
  9. BALZAK PLUS 40 mg/5 mg/25 mg COMPRIMIDOS RECUBIERTOS CON PELICULA, 28 [Concomitant]
     Indication: Myocardial ischaemia
     Route: 048
     Dates: start: 20180130
  10. ALIPZA 4 mg COMPRIMIDOS RECUBIERTOS CON PELICULA , 28 comprimidos [Concomitant]
     Indication: Myocardial ischaemia
     Route: 048
     Dates: start: 20181215

REACTIONS (1)
  - Fournier^s gangrene [Recovering/Resolving]

NARRATIVE: CASE EVENT DATE: 20230331
